FAERS Safety Report 17915704 (Version 1)
Quarter: 2020Q2

REPORT INFORMATION
  Report Type: Spontaneous
  Country: FR (occurrence: FR)
  Receive Date: 20200619
  Receipt Date: 20200619
  Transmission Date: 20200714
  Serious: Yes (Other)
  Sender: FDA-Public Use
  Company Number: FR-AUROBINDO-AUR-APL-2020-029469

PATIENT
  Age: 64 Year
  Sex: Male

DRUGS (12)
  1. ECONAZOLE. [Concomitant]
     Active Substance: ECONAZOLE NITRATE
     Indication: FUNGAL INFECTION
     Dosage: 2 DOSAGE FORM, ONCE A DAY (1APPLICATION MATIN ET SOIR)
     Route: 003
     Dates: start: 20170720
  2. BACTRIM [Suspect]
     Active Substance: SULFAMETHOXAZOLE\TRIMETHOPRIM
     Indication: RENAL TRANSPLANT
     Dosage: 2 DOSAGE FORM, EVERY WEEK (LE LUNDI ET LE JEUDI)
     Route: 048
     Dates: start: 20170529, end: 20170720
  3. CELLCEPT [Suspect]
     Active Substance: MYCOPHENOLATE MOFETIL\MYCOPHENOLATE MOFETIL HYDROCHLORIDE
     Indication: PROPHYLAXIS AGAINST TRANSPLANT REJECTION
     Dosage: 1000 MILLIGRAM, ONCE A DAY (LE LUNDI ET LE JEUDI)
     Route: 048
     Dates: start: 20170529, end: 20170720
  4. SODIUM HYDROGEN CARBONATE [Concomitant]
     Active Substance: SODIUM BICARBONATE
     Indication: PRODUCT USED FOR UNKNOWN INDICATION
     Dosage: UNK
     Route: 065
  5. PROGRAF [Suspect]
     Active Substance: TACROLIMUS
     Indication: PROPHYLAXIS AGAINST TRANSPLANT REJECTION
     Dosage: 2 MILLIGRAM, ONCE A DAY (MATIN ET SOIR)
     Route: 048
     Dates: start: 20170529, end: 20170726
  6. CORTANCYL [Concomitant]
     Active Substance: PREDNISONE
     Indication: PROPHYLAXIS AGAINST TRANSPLANT REJECTION
     Dosage: 10 MILLIGRAM, ONCE A DAY (LE MATIN PUIS ? PARTIR DU 21/07 5 MG)
     Route: 048
     Dates: start: 20170529
  7. AZANTAC [Concomitant]
     Active Substance: RANITIDINE HYDROCHLORIDE
     Indication: GASTROOESOPHAGEAL REFLUX DISEASE
     Dosage: 150 MILLIGRAM
     Route: 048
     Dates: start: 20170529, end: 20170720
  8. FORLAX [Concomitant]
     Active Substance: POLYETHYLENE GLYCOL 4000
     Indication: PRODUCT USED FOR UNKNOWN INDICATION
     Dosage: UNK
     Route: 065
  9. RANITIDINE. [Concomitant]
     Active Substance: RANITIDINE
     Indication: GASTROOESOPHAGEAL REFLUX DISEASE
     Dosage: 150 MILLIGRAM, ONCE A DAY, LE SOIR
     Route: 048
     Dates: start: 20170720
  10. ROVALCYTE [Suspect]
     Active Substance: VALGANCICLOVIR HYDROCHLORIDE
     Indication: INFECTION PROPHYLAXIS
     Dosage: 900 MILLIGRAM, EVERY WEEK (LE LUNDI ET LE JEUDI)
     Route: 048
     Dates: start: 20170529, end: 20170723
  11. FINASTERIDE. [Suspect]
     Active Substance: FINASTERIDE
     Indication: FUNGAL INFECTION
     Dosage: 5 MILLIGRAM, ONCE A DAY (LE MATIN)
     Route: 048
     Dates: start: 20170721
  12. AMLODIPINE [Concomitant]
     Active Substance: AMLODIPINE BESYLATE
     Indication: PRODUCT USED FOR UNKNOWN INDICATION
     Dosage: 10 MILLIGRAM, ONCE A DAY (LE MATIN)
     Route: 048
     Dates: start: 20170723

REACTIONS (1)
  - Leukopenia [Recovered/Resolved]

NARRATIVE: CASE EVENT DATE: 20170725
